FAERS Safety Report 9238866 (Version 1)
Quarter: 2013Q1

REPORT INFORMATION
  Report Type: Spontaneous
  Country: US (occurrence: None)
  Receive Date: 20121107
  Receipt Date: 20121107
  Transmission Date: 20140127
  Serious: No
  Sender: FDA-Public Use
  Company Number: 2012HGS-003817

PATIENT
  Age: 58 Year
  Sex: Female
  Weight: 88.45 kg

DRUGS (26)
  1. TRIAMCINOLONE CREAM AND GEL (RIAMCINOLONE) [Concomitant]
  2. TYLENOL (PARACETAMOL) [Concomitant]
  3. VITAMIN B 12 (VITAMIN B NOS) [Concomitant]
  4. BENLYSTA [Suspect]
     Indication: SYSTEMIC LUPUS ERYTHEMATOSUS
     Dosage: 1 IN 28 D
     Route: 041
     Dates: start: 20120503
  5. METHOTREXATE (METHOTREXATE0 (METHOTREXATE) [Concomitant]
  6. PREDNISONE (PREDNISONE) (PREDNISONE) [Concomitant]
  7. PLAQUENIL (HYDROXYCHLOROQUINE SULFATE) (HYDROXYCHLOROQUINE SULFATE) [Concomitant]
  8. ADVAIR (SERETIDE) (FLUTICASONE PROPIONATE, SALMETEROL XINAFOATE) [Concomitant]
  9. ALBUTEROL INHALER (SALBUTAMOL) (SALBUTAMOL) [Concomitant]
  10. ASPIRIN (ACETYLSALICYLIC ACID) (ACETYLSALICYLIC ACID) [Concomitant]
  11. FLONASE (FLUTICASONE PROPIONATE) (FLUTICASONE PROPIONATE) [Concomitant]
  12. FOLIC ACID (FOLIC ACID) (FOLIC ACID) [Concomitant]
  13. FUROSEMIDE [Concomitant]
  14. LAMOTRIGINE [Concomitant]
  15. LEVOTHYROXIN (LEVOTHYROXINE SODIUM) [Concomitant]
  16. CALCIUM [Concomitant]
  17. MAGNESIUM [Concomitant]
  18. ZINC [Concomitant]
  19. LEXAPRO (ESCITALOPRAM OXALATE) [Concomitant]
  20. LISINOPRIL [Concomitant]
  21. NAPROSYN (NAPROXEN) [Concomitant]
  22. NITROSTAT (GLYCERYL TRINITRATE) [Concomitant]
  23. OMEPRAZOLE [Concomitant]
  24. TEMAZEPAM [Concomitant]
  25. RESTASIS (CICLOSPORIN) [Concomitant]
  26. POTASSIUM CHLORIDE [Concomitant]

REACTIONS (4)
  - Fatigue [None]
  - Fluid retention [None]
  - Oedema peripheral [None]
  - White blood cell count increased [None]
